FAERS Safety Report 7615771-0 (Version None)
Quarter: 2011Q3

REPORT INFORMATION
  Report Type: 
  Country: None (occurrence: None)
  Receive Date: 20110711
  Receipt Date: 20110627
  Transmission Date: 20111222
  Serious: Yes (Hospitalization, Other)
  Sender: FDA-Public Use
  Company Number: AUR-APL-2009-01184

PATIENT
  Age: 71 Year

DRUGS (11)
  1. CLOPIDOGREL [Suspect]
     Indication: PRODUCT USED FOR UNKNOWN INDICATION
  2. ALLOPURINOL [Suspect]
     Indication: GOUT
     Dosage: PO
     Route: 048
  3. ASPIRIN [Suspect]
     Indication: PRODUCT USED FOR UNKNOWN INDICATION
  4. BENDROFLUMETHIAZIDE (BENDROFLUMETHIAZIDE) [Suspect]
     Indication: GOUT
  5. DOXAZOSIN MESYLATE [Suspect]
     Indication: PRODUCT USED FOR UNKNOWN INDICATION
     Dosage: ORAL
     Route: 048
  6. ATENOLOL [Suspect]
     Indication: PRODUCT USED FOR UNKNOWN INDICATION
     Dosage: ORAL
     Route: 048
  7. GLICLAZIDE (GLICLAZIDE) [Suspect]
     Indication: DIABETES MELLITUS
     Dosage: 160 MG (80 MG, 2 IN 1 D), ORAL
     Route: 048
  8. IRBESARTAN [Suspect]
     Indication: GOUT
  9. METFORMIN HCL [Suspect]
     Indication: DIABETES MELLITUS
     Dosage: 2 GM (1 GM, 2 IN 1 D), ORAL
     Route: 048
  10. PERINDOPRIL ERBUMINE [Suspect]
     Indication: GOUT
  11. BENDROFLUAZIDE (BENDROFLUMETHIAZIDE) [Suspect]
     Indication: PRODUCT USED FOR UNKNOWN INDICATION

REACTIONS (13)
  - FALL [None]
  - HYPOGLYCAEMIA [None]
  - LOWER RESPIRATORY TRACT INFECTION [None]
  - HYPOTHERMIA [None]
  - WHITE BLOOD CELL COUNT INCREASED [None]
  - RENAL FAILURE ACUTE [None]
  - LACTIC ACIDOSIS [None]
  - TACHYPNOEA [None]
  - ANION GAP INCREASED [None]
  - DEHYDRATION [None]
  - NEUTROPHIL COUNT INCREASED [None]
  - DRUG INTERACTION [None]
  - COMA [None]
